FAERS Safety Report 7003332-6 (Version None)
Quarter: 2010Q3

REPORT INFORMATION
  Report Type: 
  Country: None (occurrence: None)
  Receive Date: 20100920
  Receipt Date: 20100825
  Transmission Date: 20110219
  Serious: No
  Sender: FDA-Public Use
  Company Number: A0877681A

PATIENT
  Age: 23 Year
  Sex: Female

DRUGS (2)
  1. LAMICTAL [Suspect]
     Indication: BIPOLAR DISORDER
     Dosage: 150MG PER DAY
     Route: 048
     Dates: start: 20090601, end: 20100823
  2. NO CONCURRENT MEDICATION [Concomitant]

REACTIONS (2)
  - COGNITIVE DISORDER [None]
  - DIZZINESS [None]
